FAERS Safety Report 9423970 (Version 1)
Quarter: 2013Q3

REPORT INFORMATION
  Report Type: Spontaneous
  Country: US (occurrence: US)
  Receive Date: 20130729
  Receipt Date: 20130729
  Transmission Date: 20140515
  Serious: No
  Sender: FDA-Public Use
  Company Number: US-B.I. PHARMACEUTICALS,INC./RIDGEFIELD-2013-BI-21680BP

PATIENT
  Age: 85 Year
  Sex: Male
  Weight: 81 kg

DRUGS (2)
  1. COMBIVENT [Suspect]
     Indication: EMPHYSEMA
     Dosage: STRENGTH: 20 MCG / 100 MCG; DAILY DOSE: 160 MCG/800 MCG
     Route: 055
     Dates: start: 20130718
  2. NEBULIZER [Concomitant]

REACTIONS (1)
  - Drug prescribing error [Not Recovered/Not Resolved]
